FAERS Safety Report 5478811-3 (Version None)
Quarter: 2007Q4

REPORT INFORMATION
  Report Type: 
  Country: None (occurrence: None)
  Receive Date: 20071002
  Receipt Date: 20070917
  Transmission Date: 20080405
  Serious: Yes (Hospitalization)
  Sender: FDA-Public Use
  Company Number: 237915K07USA

PATIENT
  Age: 47 Year
  Sex: Male
  Weight: 79.3795 kg

DRUGS (4)
  1. REBIF [Suspect]
     Indication: MULTIPLE SCLEROSIS
     Dosage: 44 MCG, 3 IN 1 WEEKS, SUBCUTANEOUS
     Route: 058
     Dates: start: 20060315
  2. KLONOPIN [Concomitant]
  3. AMITRIPTYLINE HCL [Concomitant]
  4. TRAZODONE HCL [Concomitant]

REACTIONS (1)
  - FEELING ABNORMAL [None]
